FAERS Safety Report 15186317 (Version 1)
Quarter: 2018Q3

REPORT INFORMATION
  Report Type: Report from Study
  Country: US (occurrence: US)
  Receive Date: 20180723
  Receipt Date: 20180723
  Transmission Date: 20181010
  Serious: No
  Sender: FDA-Public Use
  Company Number: US-EXELIXIS-CABO-17011712

PATIENT
  Sex: Female

DRUGS (7)
  1. MONTELUKAST SODIUM. [Concomitant]
     Active Substance: MONTELUKAST SODIUM
  2. NORETHINDRONE. [Concomitant]
     Active Substance: NORETHINDRONE
  3. COMETRIQ [Suspect]
     Active Substance: CABOZANTINIB S-MALATE
     Indication: LUNG NEOPLASM MALIGNANT
     Dosage: 140 MG, QD
     Route: 048
     Dates: start: 20171025
  4. LEVETIRACETAM. [Concomitant]
     Active Substance: LEVETIRACETAM
  5. METOPROLOL TARTRATE. [Concomitant]
     Active Substance: METOPROLOL TARTRATE
  6. IBU [Concomitant]
     Active Substance: IBUPROFEN
  7. FUROSEMIDE. [Concomitant]
     Active Substance: FUROSEMIDE

REACTIONS (2)
  - Throat irritation [Unknown]
  - Off label use [Unknown]
